FAERS Safety Report 16265905 (Version 1)
Quarter: 2019Q2

REPORT INFORMATION
  Report Type: Report from Study
  Country: None (occurrence: DE)
  Receive Date: 20190502
  Receipt Date: 20190502
  Transmission Date: 20190711
  Serious: Yes (Hospitalization)
  Sender: FDA-Public Use
  Company Number: DE-KADMON PHARMACEUTICALS, LLC-KAD-201811-01402

PATIENT
  Age: 49 Year
  Sex: Male
  Weight: 64 kg

DRUGS (10)
  1. TENOFOVIR DISOPROXIL FUMARATE. [Suspect]
     Active Substance: TENOFOVIR DISOPROXIL FUMARATE
     Indication: HIV INFECTION
     Dosage: 300 MG
  2. BISOPROLOL RATIOPHARM [Concomitant]
     Active Substance: BISOPROLOL
     Dates: start: 20061101
  3. PEGASYS [Suspect]
     Active Substance: PEGINTERFERON ALFA-2A
     Indication: CHRONIC HEPATITIS C
     Dosage: 180
     Route: 058
     Dates: start: 20140213, end: 20140723
  4. EMTRICITABINE [Suspect]
     Active Substance: EMTRICITABINE
     Indication: HIV INFECTION
     Dosage: 200 MG
  5. SYMBICORT [Concomitant]
     Active Substance: BUDESONIDE\FORMOTEROL FUMARATE DIHYDRATE
     Dates: start: 20181105
  6. DEKRISTOL NEU [Concomitant]
     Dates: start: 20140207
  7. ATAZANAVIR. [Concomitant]
     Active Substance: ATAZANAVIR
     Indication: HIV INFECTION
     Dosage: 300 MG
  8. IBUFLAM [IBUPROFEN] [Concomitant]
     Active Substance: IBUPROFEN
     Dates: start: 20181109
  9. RITONAVIR. [Concomitant]
     Active Substance: RITONAVIR
     Indication: HIV INFECTION
     Dosage: 100 MG
  10. RIBAVIRIN. [Suspect]
     Active Substance: RIBAVIRIN
     Indication: CHRONIC HEPATITIS C
     Dosage: 1200 MG
     Route: 048
     Dates: start: 20140213, end: 20140723

REACTIONS (1)
  - Nasal septum deviation [Recovered/Resolved]

NARRATIVE: CASE EVENT DATE: 20181102
